FAERS Safety Report 6195887-9 (Version None)
Quarter: 2009Q2

REPORT INFORMATION
  Report Type: 
  Country: None (occurrence: None)
  Receive Date: 20090520
  Receipt Date: 20090511
  Transmission Date: 20091009
  Serious: Yes (Other)
  Sender: FDA-Public Use
  Company Number: US-ROCHE-611420

PATIENT
  Sex: Female

DRUGS (3)
  1. BONIVA [Suspect]
     Indication: OSTEOPENIA
     Route: 048
     Dates: start: 20081227, end: 20090121
  2. LIPITOR [Concomitant]
  3. ASPIRIN [Concomitant]
     Dosage: DRUG: BABY ASPIRIN

REACTIONS (2)
  - ATRIAL FIBRILLATION [None]
  - SYSTOLIC HYPERTENSION [None]
